FAERS Safety Report 8484151-0 (Version None)
Quarter: 2012Q3

REPORT INFORMATION
  Report Type: 
  Country: None (occurrence: None)
  Receive Date: 20120703
  Receipt Date: 20120625
  Transmission Date: 20120928
  Serious: Yes (Hospitalization)
  Sender: FDA-Public Use
  Company Number: FR-SANOFI-AVENTIS-2012SA045092

PATIENT
  Age: 60 Year
  Sex: Female

DRUGS (8)
  1. ACTONEL [Suspect]
     Route: 048
     Dates: end: 20120220
  2. PLAVIX [Suspect]
     Route: 048
     Dates: end: 20120220
  3. ATRIPLA [Suspect]
     Indication: HIV INFECTION
     Route: 048
     Dates: end: 20120220
  4. MEDIATENSYL [Suspect]
     Route: 048
     Dates: end: 20120218
  5. IMOVANE [Concomitant]
     Route: 048
  6. EZETIMIBE [Concomitant]
     Route: 048
  7. INDAPAMIDE [Suspect]
     Route: 048
     Dates: end: 20120218
  8. TRANDOLAPRIL [Suspect]
     Route: 048
     Dates: end: 20120218

REACTIONS (1)
  - RENAL TUBULAR DISORDER [None]
